FAERS Safety Report 6040140-7 (Version None)
Quarter: 2009Q1

REPORT INFORMATION
  Report Type: 
  Country: None (occurrence: None)
  Receive Date: 20090116
  Receipt Date: 20071220
  Transmission Date: 20090719
  Serious: No
  Sender: FDA-Public Use
  Company Number: US-BRISTOL-MYERS SQUIBB COMPANY-14021869

PATIENT
  Age: 34 Year
  Sex: Male

DRUGS (4)
  1. ABILIFY [Suspect]
     Dates: start: 20021201, end: 20031201
  2. NEURONTIN [Suspect]
  3. REMERON [Suspect]
  4. CLONAZEPAM [Suspect]

REACTIONS (1)
  - MUSCLE SPASMS [None]
